FAERS Safety Report 5212894-0 (Version None)
Quarter: 2007Q1

REPORT INFORMATION
  Report Type: 
  Country: None (occurrence: None)
  Receive Date: 20070117
  Receipt Date: 20070105
  Transmission Date: 20070707
  Serious: Yes (Death, Other)
  Sender: FDA-Public Use
  Company Number: GXKR2007US00506

PATIENT
  Age: 52 Year
  Sex: Female

DRUGS (6)
  1. MIRTAZAPINE [Suspect]
  2. DESIPRAMIDE HCL [Suspect]
  3. METHAMPHETAMINE HYDROCHLORIDE [Suspect]
  4. ZIPRASIDONE HCL [Concomitant]
  5. LEVOTHYROXINE SODIUM [Concomitant]
  6. LORAZEPAM [Concomitant]

REACTIONS (7)
  - COMPLETED SUICIDE [None]
  - DRUG TOXICITY [None]
  - HYPERTENSIVE HEART DISEASE [None]
  - MULTIPLE DRUG OVERDOSE INTENTIONAL [None]
  - OEDEMA [None]
  - PULMONARY CONGESTION [None]
  - THYROID NEOPLASM [None]
